FAERS Safety Report 4412151-6 (Version None)
Quarter: 2004Q3

REPORT INFORMATION
  Report Type: 
  Country: None (occurrence: None)
  Receive Date: 20040730
  Receipt Date: 20040720
  Transmission Date: 20050211
  Serious: Yes (Other)
  Sender: FDA-Public Use
  Company Number: US-ROCHE-375081

PATIENT
  Age: 61 Year
  Sex: Male
  Weight: 90.7 kg

DRUGS (4)
  1. PEGASYS [Suspect]
     Indication: HEPATITIS C
     Route: 065
     Dates: start: 20040622, end: 20040719
  2. PEGASYS [Suspect]
     Route: 065
     Dates: start: 20040720
  3. REBETOL [Concomitant]
     Indication: HEPATITIS C
     Dates: start: 20040622
  4. XANAX [Concomitant]

REACTIONS (13)
  - CONTUSION [None]
  - ECZEMA [None]
  - HYPOAESTHESIA [None]
  - INJECTION SITE DERMATITIS [None]
  - INJECTION SITE ERYTHEMA [None]
  - INJECTION SITE HAEMORRHAGE [None]
  - INJECTION SITE INFLAMMATION [None]
  - LIVEDO RETICULARIS [None]
  - NEUTROPHIL COUNT DECREASED [None]
  - PARAESTHESIA [None]
  - RASH PAPULAR [None]
  - SKIN WRINKLING [None]
  - TINNITUS [None]
